FAERS Safety Report 5933146-7 (Version None)
Quarter: 2008Q4

REPORT INFORMATION
  Report Type: 
  Country: None (occurrence: None)
  Receive Date: 20081023
  Receipt Date: 20060626
  Transmission Date: 20090506
  Serious: Yes (Life-Threatening, Hospitalization, Other)
  Sender: FDA-Public Use
  Company Number: 2006AL002179

PATIENT
  Age: 57 Year
  Sex: Female

DRUGS (7)
  1. METFORMIN HYDROCHLORIDE [Suspect]
     Indication: TYPE 2 DIABETES MELLITUS
     Dosage: 1 G;TID;PO
     Route: 048
     Dates: end: 20060513
  2. ASPIRIN [Concomitant]
  3. ATENOLOL [Concomitant]
  4. FRUSEMIDE [Concomitant]
  5. MOXONIDINE [Concomitant]
  6. RAMIPRIL [Concomitant]
  7. LOSARTAN POTASSIUM [Concomitant]

REACTIONS (6)
  - BLOOD GASES ABNORMAL [None]
  - DEHYDRATION [None]
  - DIALYSIS [None]
  - LACTIC ACIDOSIS [None]
  - RENAL FAILURE [None]
  - VOMITING [None]
